FAERS Safety Report 7601642-2 (Version None)
Quarter: 2011Q3

REPORT INFORMATION
  Report Type: 
  Country: None (occurrence: None)
  Receive Date: 20110711
  Receipt Date: 20110706
  Transmission Date: 20111222
  Serious: Yes (Hospitalization, Other)
  Sender: FDA-Public Use
  Company Number: FR-BRISTOL-MYERS SQUIBB COMPANY-15767924

PATIENT
  Age: 39 Year
  Sex: Female

DRUGS (6)
  1. ZOLPIDEM [Concomitant]
     Indication: INSOMNIA
  2. CLONAZEPAM [Concomitant]
     Indication: ANXIETY
  3. PAROXETINE HYDROCHLORIDE [Concomitant]
     Indication: DEPRESSION
  4. SPRYCEL [Suspect]
     Indication: CHRONIC MYELOID LEUKAEMIA
     Route: 048
     Dates: start: 20080920, end: 20110510
  5. ROCEPHIN [Concomitant]
     Route: 042
     Dates: start: 20110509, end: 20110515
  6. PAROXETINE HYDROCHLORIDE [Concomitant]
     Dates: start: 20080808

REACTIONS (3)
  - HEPATIC VEIN OCCLUSION [None]
  - ASCITES [None]
  - TONSILLITIS [None]
